FAERS Safety Report 14813743 (Version 1)
Quarter: 2018Q2

REPORT INFORMATION
  Report Type: Spontaneous
  Country: US (occurrence: US)
  Receive Date: 20180426
  Receipt Date: 20180426
  Transmission Date: 20180711
  Serious: No
  Sender: FDA-Public Use
  Company Number: US-PFIZER INC-2017553468

PATIENT
  Age: 19 Month
  Sex: Female

DRUGS (1)
  1. EUCRISA [Suspect]
     Active Substance: CRISABOROLE
     Dosage: 2% OINTMENT, APPLIED TO AFFECTED AREA TWICE A DAY
     Route: 061

REACTIONS (2)
  - Drug administered to patient of inappropriate age [Unknown]
  - Burning sensation [Unknown]
